FAERS Safety Report 9799443 (Version 2)
Quarter: 2014Q1

REPORT INFORMATION
  Report Type: Spontaneous
  Country: US (occurrence: None)
  Receive Date: 20131231
  Receipt Date: 20140116
  Transmission Date: 20141002
  Serious: Yes (Other)
  Sender: FDA-Public Use
  Company Number: AUR-APL-2013-10711

PATIENT
  Age: 25 Year
  Sex: Male
  Weight: 90.72 kg

DRUGS (3)
  1. TRIMETHOPRIM + SULFAMETHOXAZOLE [Suspect]
     Indication: OFF LABEL USE
     Dosage: 2 IN 1 D, UNKNOWN
     Dates: start: 20130518, end: 20130527
  2. TRIMETHOPRIM + SULFAMETHOXAZOLE [Suspect]
     Indication: STAPHYLOCOCCAL INFECTION
     Dosage: 2 IN 1 D, UNKNOWN
     Dates: start: 20130518, end: 20130527
  3. ADDERALL [Concomitant]

REACTIONS (3)
  - Blindness unilateral [None]
  - Neurosis [None]
  - Optic neuritis [None]
